FAERS Safety Report 11911324 (Version 2)
Quarter: 2016Q1

REPORT INFORMATION
  Report Type: Spontaneous
  Country: US (occurrence: US)
  Receive Date: 20160112
  Receipt Date: 20160215
  Transmission Date: 20160526
  Serious: No
  Sender: FDA-Public Use
  Company Number: US-ROXANE LABORATORIES, INC.-2016-RO-00030RO

PATIENT
  Sex: Male

DRUGS (1)
  1. MONTELUKAST SODIUM. [Suspect]
     Active Substance: MONTELUKAST SODIUM
     Indication: MULTIPLE ALLERGIES
     Dosage: 10 MG
     Route: 065

REACTIONS (2)
  - Product quality issue [Not Recovered/Not Resolved]
  - Product substitution issue [Not Recovered/Not Resolved]
